FAERS Safety Report 4766533-3 (Version None)
Quarter: 2005Q3

REPORT INFORMATION
  Report Type: 
  Country: None (occurrence: None)
  Receive Date: 20050909
  Receipt Date: 20050902
  Transmission Date: 20060218
  Serious: Yes (Death)
  Sender: FDA-Public Use
  Company Number: 2005US001008

PATIENT
  Age: 23 Month
  Sex: Male

DRUGS (2)
  1. AMBISOME [Suspect]
     Indication: VISCERAL LEISHMANIASIS
     Dosage: 5.00 MG/KG, UID/QD, IV NOS
     Route: 042
     Dates: start: 20050619, end: 20050620
  2. GLUCANTIME (ANTIMONY MEGLUMINE) [Concomitant]

REACTIONS (2)
  - CARDIOPULMONARY FAILURE [None]
  - CYANOSIS [None]
